FAERS Safety Report 17438824 (Version 1)
Quarter: 2020Q1

REPORT INFORMATION
  Report Type: Report from Study
  Country: IT (occurrence: IT)
  Receive Date: 20200220
  Receipt Date: 20200220
  Transmission Date: 20200409
  Serious: Yes (Other)
  Sender: FDA-Public Use
  Company Number: IT-TEVA-2020-IT-1188494

PATIENT
  Age: 27 Year
  Sex: Male

DRUGS (5)
  1. CICLOSPORIN [Suspect]
     Active Substance: CYCLOSPORINE
     Indication: RENAL TRANSPLANT
     Dosage: 300 MG
     Route: 048
     Dates: start: 20191021
  2. AZATIOPRINA HEXAL 50 MG COMPRESSE RIVESTITE CON FILM [Concomitant]
     Dosage: 75 MG
     Route: 048
  3. ATENOLOLO ABC 100 MG COMPRESSE RIVESTITE CON FILM [Concomitant]
     Dosage: 100 MG
     Route: 048
  4. APROVEL 150 MG TABLETS [Concomitant]
     Active Substance: IRBESARTAN
     Dosage: 75 MG
     Route: 048
  5. DELTACORTENE 5 MG COMPRESSE [Concomitant]
     Active Substance: PREDNISONE
     Dosage: 5 MG
     Route: 048

REACTIONS (1)
  - Dyslipidaemia [Recovering/Resolving]

NARRATIVE: CASE EVENT DATE: 20200110
